FAERS Safety Report 5608126-1 (Version None)
Quarter: 2008Q1

REPORT INFORMATION
  Report Type: 
  Country: None (occurrence: None)
  Receive Date: 20080130
  Receipt Date: 20080118
  Transmission Date: 20080703
  Serious: Yes (Hospitalization)
  Sender: FDA-Public Use
  Company Number: FR-ROCHE-511544

PATIENT
  Age: 68 Year
  Sex: Male

DRUGS (2)
  1. PEGASYS [Suspect]
     Dosage: FORM REPORTED: INJECTABLE AMPOULE. DOSAGE REPORTED: 180 MICROGRAM PER WEEK
     Route: 058
     Dates: start: 20051025, end: 20060201
  2. COPEGUS [Suspect]
     Route: 048
     Dates: start: 20051025

REACTIONS (3)
  - DYSPHAGIA [None]
  - MUSCULAR WEAKNESS [None]
  - RESPIRATORY DISTRESS [None]
